FAERS Safety Report 6815032-3 (Version None)
Quarter: 2010Q2

REPORT INFORMATION
  Report Type: 
  Country: None (occurrence: None)
  Receive Date: 20100630
  Receipt Date: 20100630
  Transmission Date: 20101027
  Serious: Yes (Hospitalization)
  Sender: FDA-Public Use
  Company Number: None

PATIENT
  Age: 37 Year
  Sex: Male
  Weight: 66.6788 kg

DRUGS (1)
  1. CLARITHROMYCIN [Suspect]
     Indication: RESPIRATORY TRACT INFECTION
     Dosage: 1 TABLET TWICE A DAY
     Dates: start: 20100610, end: 20100613

REACTIONS (2)
  - DRUG HYPERSENSITIVITY [None]
  - GUILLAIN-BARRE SYNDROME [None]
